FAERS Safety Report 25105280 (Version 3)
Quarter: 2025Q1

REPORT INFORMATION
  Report Type: Spontaneous
  Country: US (occurrence: US)
  Receive Date: 20250321
  Receipt Date: 20250329
  Transmission Date: 20250409
  Serious: No
  Sender: UNITED THERAPEUTICS
  Company Number: US-UNITED THERAPEUTICS-UNT-2025-007369

PATIENT
  Age: 59 Year
  Sex: Female
  Weight: 67.12 kg

DRUGS (21)
  1. TYVASO DPI [Suspect]
     Active Substance: TREPROSTINIL
     Indication: Pulmonary arterial hypertension
     Dosage: 16 ?G, QID
     Dates: start: 202502, end: 202502
  2. TYVASO DPI [Suspect]
     Active Substance: TREPROSTINIL
     Dosage: 16 ?G, QID [RESTARTED]
     Dates: start: 20250228
  3. TYVASO DPI [Suspect]
     Active Substance: TREPROSTINIL
     Dosage: 32 ?G, QID
  4. TYVASO DPI [Suspect]
     Active Substance: TREPROSTINIL
     Dosage: 48 ?G, QID
  5. TYVASO DPI [Suspect]
     Active Substance: TREPROSTINIL
     Indication: Pulmonary arterial hypertension
  6. TYVASO DPI [Suspect]
     Active Substance: TREPROSTINIL
     Indication: Pulmonary arterial hypertension
  7. TYVASO DPI [Suspect]
     Active Substance: TREPROSTINIL
     Indication: Pulmonary arterial hypertension
  8. TADALAFIL [Concomitant]
     Active Substance: TADALAFIL
     Indication: Product used for unknown indication
  9. POTASSIUM CHLORIDE [Concomitant]
     Active Substance: POTASSIUM CHLORIDE
     Indication: Product used for unknown indication
  10. GINKGO [Concomitant]
     Active Substance: GINKGO
     Indication: Product used for unknown indication
  11. TORSEMIDE [Concomitant]
     Active Substance: TORSEMIDE
     Indication: Product used for unknown indication
  12. MAGNESIUM [Concomitant]
     Active Substance: MAGNESIUM
     Indication: Product used for unknown indication
  13. BERBERINE [Concomitant]
     Active Substance: BERBERINE
     Indication: Product used for unknown indication
  14. DIETARY SUPPLEMENT\RESVERATROL [Concomitant]
     Active Substance: DIETARY SUPPLEMENT\RESVERATROL
     Indication: Product used for unknown indication
  15. OMEGA-3 ACIDS [Concomitant]
     Active Substance: OMEGA-3 FATTY ACIDS
     Indication: Product used for unknown indication
  16. OXYGEN [Concomitant]
     Active Substance: OXYGEN
     Indication: Product used for unknown indication
  17. LIOTHYRONINE SODIUM [Concomitant]
     Active Substance: LIOTHYRONINE SODIUM
     Indication: Product used for unknown indication
  18. VITAMIN D3 [Concomitant]
     Active Substance: CHOLECALCIFEROL
     Indication: Product used for unknown indication
  19. ESTRADIOL [Concomitant]
     Active Substance: ESTRADIOL
     Indication: Product used for unknown indication
     Dosage: UNK, QWK
  20. VITAMIN B COMPLEX [Concomitant]
     Active Substance: CYANOCOBALAMIN\DEXPANTHENOL\NIACINAMIDE\PYRIDOXINE HYDROCHLORIDE\RIBOFLAVIN 5^-PHOSPHATE SODIUM\THIA
     Indication: Product used for unknown indication
  21. AMBRISENTAN [Concomitant]
     Active Substance: AMBRISENTAN
     Indication: Product used for unknown indication

REACTIONS (13)
  - Diarrhoea [Unknown]
  - Abdominal pain upper [Unknown]
  - Stomatitis [Unknown]
  - Pain [Unknown]
  - Headache [Unknown]
  - Blood pressure increased [Unknown]
  - Fatigue [Unknown]
  - Blood pressure decreased [Recovering/Resolving]
  - Dyspnoea exertional [Unknown]
  - Chest discomfort [Unknown]
  - Chest pain [Unknown]
  - Fluid retention [Unknown]
  - Limb discomfort [Unknown]

NARRATIVE: CASE EVENT DATE: 20250201
